FAERS Safety Report 8340694-1 (Version None)
Quarter: 2012Q2

REPORT INFORMATION
  Report Type: 
  Country: None (occurrence: None)
  Receive Date: 20120507
  Receipt Date: 20120428
  Transmission Date: 20120825
  Serious: Yes (Death, Life-Threatening, Hospitalization, Other)
  Sender: FDA-Public Use
  Company Number: US-BIOGENIDEC-2011BI028149

PATIENT
  Age: 60 Year
  Sex: Female

DRUGS (20)
  1. MACRODANTIN [Concomitant]
     Route: 048
  2. TRIMETHOPRIM [Concomitant]
     Route: 048
  3. ERGOCALCIFEROL [Concomitant]
     Route: 048
  4. KRILL OIL [Concomitant]
     Route: 048
  5. EZETIMIBE [Concomitant]
     Route: 048
  6. VITAMIN C [Concomitant]
     Route: 048
  7. CALCIUM CARBONATE [Concomitant]
     Route: 048
  8. DEPAKOTE ER [Concomitant]
     Route: 048
  9. ENABLEX [Concomitant]
     Route: 048
  10. IPRATROPIUM BROMIDE [Concomitant]
     Route: 055
  11. NEXIUM [Concomitant]
     Route: 048
  12. LEVOTHYROXINE SODIUM [Concomitant]
     Route: 048
  13. IRON SUPPLEMENT [Concomitant]
     Route: 048
  14. LYRICA [Concomitant]
     Route: 048
  15. TYSABRI [Suspect]
     Indication: MULTIPLE SCLEROSIS
     Route: 042
     Dates: start: 20071005, end: 20110419
  16. NOVOLOG [Concomitant]
     Route: 058
  17. MULTI-VITAMINS [Concomitant]
     Route: 048
  18. TYLENOL (CAPLET) [Concomitant]
     Route: 048
  19. SIMVASTATIN [Concomitant]
     Route: 048
  20. RECLAST [Concomitant]
     Route: 042

REACTIONS (3)
  - URINARY TRACT INFECTION [None]
  - SEPSIS [None]
  - ADENOCARCINOMA [None]
